FAERS Safety Report 9783636 (Version 1)
Quarter: 2013Q4

REPORT INFORMATION
  Report Type: Spontaneous
  Country: US (occurrence: US)
  Receive Date: 20131226
  Receipt Date: 20131226
  Transmission Date: 20140711
  Serious: No
  Sender: FDA-Public Use
  Company Number: US-PFIZER INC-2013368106

PATIENT
  Age: 63 Year
  Sex: Female
  Weight: 43.99 kg

DRUGS (3)
  1. GABAPENTIN [Suspect]
     Indication: POST HERPETIC NEURALGIA
     Dosage: UNK
     Dates: start: 2011, end: 2011
  2. AMITRIPTYLINE [Suspect]
     Indication: POST HERPETIC NEURALGIA
     Dosage: 50 MG (BY TAKING TWO CAPSULES EACH OF 25MG TOGETHER), 1X/DAY
     Route: 048
     Dates: start: 2011
  3. VICODIN [Concomitant]
     Indication: MUSCULOSKELETAL PAIN
     Dosage: UNK

REACTIONS (7)
  - Drug intolerance [Unknown]
  - Malaise [Unknown]
  - Feeling abnormal [Unknown]
  - Somnolence [Not Recovered/Not Resolved]
  - Nausea [Not Recovered/Not Resolved]
  - Weight increased [Unknown]
  - Dysgeusia [Not Recovered/Not Resolved]
